FAERS Safety Report 7959258-4 (Version None)
Quarter: 2011Q4

REPORT INFORMATION
  Report Type: 
  Country: None (occurrence: None)
  Receive Date: 20111206
  Receipt Date: 20111202
  Transmission Date: 20120403
  Serious: Yes (Hospitalization, Other)
  Sender: FDA-Public Use
  Company Number: JP-PFIZER INC-2011280051

PATIENT
  Age: 84 Year
  Sex: Female
  Weight: 51 kg

DRUGS (18)
  1. CINAL [Concomitant]
     Indication: PSORIASIS
     Dosage: 1 G, 2X/DAY
     Route: 048
  2. CLOBETASOL PROPIONATE [Concomitant]
     Indication: PSORIASIS
     Dosage: 0.05 %
     Route: 003
  3. OMEPRAZOLE [Concomitant]
     Indication: GASTRITIS
     Dosage: 20 MG, 1X/DAY
     Route: 048
  4. LYRICA [Suspect]
     Indication: HYPOAESTHESIA
     Dosage: 75 MG, 2X/DAY
     Route: 048
     Dates: start: 20111105, end: 20111114
  5. ALDACTONE [Concomitant]
     Indication: OEDEMA PERIPHERAL
     Dosage: 25 MG, 1X/DAY
     Route: 048
  6. AMITRIPTYLINE HCL [Concomitant]
     Indication: NEURALGIA
     Dosage: 25 MG, 1X/DAY
     Route: 048
  7. MYONAL [Concomitant]
     Indication: NEURALGIA
     Dosage: 50 MG, 3X/DAY
     Route: 048
  8. CLONAZEPAM [Concomitant]
     Indication: NEURALGIA
     Dosage: 0.5 MG, 2X/DAY
     Route: 048
  9. ALLOPURINOL [Concomitant]
     Indication: HYPERURICOSURIA
     Dosage: 100 MG, 1X/DAY
     Route: 048
  10. LASIX [Concomitant]
     Indication: OEDEMA PERIPHERAL
     Dosage: 20 MG, 1X/DAY
     Route: 048
  11. AZUNOL [Concomitant]
     Indication: PSORIASIS
     Dosage: 0.05 %
     Route: 003
  12. ANPLAG [Concomitant]
     Indication: CIRCULATORY COLLAPSE
     Dosage: 50 MG, 3X/DAY
     Route: 048
  13. LYRICA [Suspect]
     Indication: NEURALGIA
     Dosage: 75 MG, 1X/DAY
     Route: 048
     Dates: start: 20111104, end: 20111104
  14. BETAMETHASONE [Concomitant]
     Indication: PSORIASIS
     Dosage: 0.12 %
     Route: 003
  15. PATANOL [Concomitant]
     Indication: CONJUNCTIVITIS
     Dosage: 0.1 %
     Route: 047
  16. SILECE [Suspect]
     Indication: INSOMNIA
     Dosage: 2 MG, 1X/DAY
     Route: 048
     Dates: end: 20111114
  17. SIGMART [Concomitant]
     Indication: ANGINA PECTORIS
     Dosage: 5 MG, 3X/DAY
     Route: 048
  18. GEBEN [Concomitant]
     Dosage: UNK

REACTIONS (4)
  - BLOOD CREATININE INCREASED [None]
  - BLOOD UREA INCREASED [None]
  - SOMNOLENCE [None]
  - BRONCHITIS [None]
